FAERS Safety Report 21524881 (Version 1)
Quarter: 2022Q4

REPORT INFORMATION
  Report Type: Spontaneous
  Country: US (occurrence: US)
  Receive Date: 20221030
  Receipt Date: 20221030
  Transmission Date: 20230113
  Serious: No
  Sender: FDA-Public Use
  Company Number: US-SA-SAC20221025000744

PATIENT
  Sex: Female

DRUGS (7)
  1. KEVZARA [Suspect]
     Active Substance: SARILUMAB
     Dosage: 200 MG, QOW
     Route: 058
  2. RAYOS [Concomitant]
     Active Substance: PREDNISONE
  3. NAPROXEN [Concomitant]
     Active Substance: NAPROXEN
  4. RASUVO [Concomitant]
     Active Substance: METHOTREXATE SODIUM
  5. ARAVA [Concomitant]
     Active Substance: LEFLUNOMIDE
  6. HUMIRA [Concomitant]
     Active Substance: ADALIMUMAB
  7. PREDNISONE [Concomitant]
     Active Substance: PREDNISONE

REACTIONS (2)
  - Injection site pain [Unknown]
  - Injection site swelling [Unknown]
